FAERS Safety Report 14309098 (Version 1)
Quarter: 2017Q4

REPORT INFORMATION
  Report Type: Report from Study
  Country: AU (occurrence: AU)
  Receive Date: 20171220
  Receipt Date: 20171220
  Transmission Date: 20180321
  Serious: Yes (Hospitalization)
  Sender: FDA-Public Use
  Company Number: AU-BIOGEN-2016BI00331158

PATIENT
  Age: 60 Year
  Sex: Female

DRUGS (3)
  1. PLEGRIDY [Suspect]
     Active Substance: PEGINTERFERON BETA-1A
     Route: 058
     Dates: start: 201612
  2. PLEGRIDY [Suspect]
     Active Substance: PEGINTERFERON BETA-1A
     Route: 058
     Dates: end: 201710
  3. PLEGRIDY [Suspect]
     Active Substance: PEGINTERFERON BETA-1A
     Indication: MULTIPLE SCLEROSIS
     Route: 058
     Dates: start: 20161128

REACTIONS (6)
  - Multiple sclerosis [Unknown]
  - Mobility decreased [Recovered/Resolved with Sequelae]
  - Muscle strain [Not Recovered/Not Resolved]
  - Arthralgia [Unknown]
  - Influenza like illness [Unknown]
  - Injection site reaction [Recovered/Resolved]

NARRATIVE: CASE EVENT DATE: 201612
